FAERS Safety Report 6031556-3 (Version None)
Quarter: 2009Q1

REPORT INFORMATION
  Report Type: 
  Country: None (occurrence: None)
  Receive Date: 20090108
  Receipt Date: 20081219
  Transmission Date: 20090719
  Serious: Yes (Other)
  Sender: FDA-Public Use
  Company Number: BR-PFIZER INC-2008029626

PATIENT

DRUGS (3)
  1. NORVASC [Suspect]
     Indication: BLOOD PRESSURE ABNORMAL
     Dosage: 2.5 MG, 1X/DAY
     Route: 048
     Dates: start: 20030101
  2. INDAPAMIDE [Concomitant]
     Dosage: UNK
  3. COZAAR [Concomitant]
     Dosage: UNK

REACTIONS (6)
  - HEPATIC ENZYME ABNORMAL [None]
  - LIBIDO DISORDER [None]
  - OEDEMA PERIPHERAL [None]
  - PAIN IN EXTREMITY [None]
  - SKIN DISCOLOURATION [None]
  - WHITE BLOOD CELL DISORDER [None]
